FAERS Safety Report 6760072-6 (Version None)
Quarter: 2010Q2

REPORT INFORMATION
  Report Type: 
  Country: None (occurrence: None)
  Receive Date: 20100608
  Receipt Date: 20100525
  Transmission Date: 20101027
  Serious: Yes (Hospitalization)
  Sender: FDA-Public Use
  Company Number: MY-RANBAXY-2010RR-33832

PATIENT
  Age: 32 Year
  Sex: Female

DRUGS (8)
  1. LORAZEPAM [Suspect]
     Indication: BIPOLAR DISORDER
     Dosage: 1 MG, BID
  2. LORAZEPAM [Suspect]
     Dosage: 1.5 MG, PRN
  3. LITHIUM [Suspect]
     Indication: BIPOLAR DISORDER
     Dosage: 300 MG, UNK
  4. LITHIUM [Suspect]
     Dosage: 600 MG, UNK
  5. BENZHEXOL [Suspect]
     Indication: BIPOLAR DISORDER
     Dosage: 4 MG, TID
  6. CLOMAZAPINE [Suspect]
     Indication: BIPOLAR DISORDER
     Dosage: 10 MG, QD
  7. CEFTRIAXONE [Concomitant]
     Indication: INFECTION
     Dosage: 1 G, BID
     Route: 042
  8. C-PENICILLIN [Concomitant]
     Indication: INFECTION
     Dosage: UNK

REACTIONS (3)
  - CENTRAL NERVOUS SYSTEM LESION [None]
  - DRUG INTERACTION [None]
  - NEUROLEPTIC MALIGNANT SYNDROME [None]
